FAERS Safety Report 5690571-X (Version None)
Quarter: 2008Q2

REPORT INFORMATION
  Report Type: 
  Country: None (occurrence: None)
  Receive Date: 20080401
  Receipt Date: 19850625
  Transmission Date: 20081010
  Serious: Yes (Death, Congenital Anomaly, Other)
  Sender: FDA-Public Use
  Company Number: US-ROCHE-850200845001

PATIENT

DRUGS (3)
  1. ACCUTANE [Suspect]
     Indication: DRUG USE FOR UNKNOWN INDICATION
     Dates: start: 19840705, end: 19840804
  2. ONE-A-DAY [Concomitant]
     Dates: start: 19840530, end: 19850219
  3. ACETAMINOPHEN [Concomitant]

REACTIONS (7)
  - CONGENITAL CEREBELLAR AGENESIS [None]
  - CONGENITAL ENDOCRINE ANOMALY [None]
  - CONGENITAL HYDROCEPHALUS [None]
  - DEATH [None]
  - DYSMORPHISM [None]
  - EAR MALFORMATION [None]
  - PSYCHOMOTOR SKILLS IMPAIRED [None]
